FAERS Safety Report 5907983-9 (Version None)
Quarter: 2008Q4

REPORT INFORMATION
  Report Type: 
  Country: None (occurrence: None)
  Receive Date: 20081003
  Receipt Date: 20080922
  Transmission Date: 20090506
  Serious: Yes (Other)
  Sender: FDA-Public Use
  Company Number: NL-PFIZER INC-2008075995

PATIENT
  Sex: Female
  Weight: 70 kg

DRUGS (1)
  1. CHANTIX [Suspect]
     Indication: SMOKING CESSATION THERAPY
     Dosage: FREQ:QD: EVERY DAY
     Route: 048
     Dates: start: 20080530, end: 20080616

REACTIONS (2)
  - AGGRESSION [None]
  - IMPAIRED DRIVING ABILITY [None]
